FAERS Safety Report 7731984-1 (Version None)
Quarter: 2011Q3

REPORT INFORMATION
  Report Type: 
  Country: None (occurrence: None)
  Receive Date: 20110906
  Receipt Date: 20110720
  Transmission Date: 20111222
  Serious: No
  Sender: FDA-Public Use
  Company Number: US-AMGEN-USASP2011036964

PATIENT
  Age: 86 Year
  Sex: Female

DRUGS (6)
  1. TYLENOL (CAPLET) [Concomitant]
     Dosage: UNK
  2. AVAPRO [Concomitant]
     Indication: HYPERTENSION
     Dosage: UNK
  3. PROLIA [Suspect]
     Indication: OSTEOPOROSIS POSTMENOPAUSAL
     Dosage: 60 MG, UNK
     Dates: start: 20110101, end: 20110101
  4. ASPIRIN [Concomitant]
     Dosage: UNK MG, UNK
  5. SIMVASTATIN [Concomitant]
     Dosage: UNK
  6. CALCIUM WITH VITAMIN D             /00944201/ [Concomitant]
     Dosage: UNK

REACTIONS (2)
  - FEELING ABNORMAL [None]
  - NONSPECIFIC REACTION [None]
